FAERS Safety Report 6371061-8 (Version None)
Quarter: 2009Q3

REPORT INFORMATION
  Report Type: 
  Country: None (occurrence: None)
  Receive Date: 20090921
  Receipt Date: 20090921
  Transmission Date: 20100115
  Serious: No
  Sender: FDA-Public Use
  Company Number: None

PATIENT
  Age: 51 Year
  Sex: Male
  Weight: 69 kg

DRUGS (1)
  1. VARENICLINE [Suspect]
     Dosage: 1 MG BID
     Dates: start: 20090701, end: 20090720

REACTIONS (1)
  - PERSONALITY CHANGE [None]
